FAERS Safety Report 12157357 (Version 1)
Quarter: 2016Q1

REPORT INFORMATION
  Report Type: Spontaneous
  Country: US (occurrence: US)
  Receive Date: 20160308
  Receipt Date: 20160308
  Transmission Date: 20160526
  Serious: No
  Sender: FDA-Public Use
  Company Number: US-ASTRAZENECA-2016SE25034

PATIENT
  Age: 78 Year
  Sex: Male

DRUGS (1)
  1. NEXIUM 24HR [Suspect]
     Active Substance: ESOMEPRAZOLE MAGNESIUM
     Route: 048

REACTIONS (3)
  - Tooth erosion [Not Recovered/Not Resolved]
  - Dysgeusia [Not Recovered/Not Resolved]
  - Hyperchlorhydria [Not Recovered/Not Resolved]
